FAERS Safety Report 5167193-2 (Version None)
Quarter: 2006Q4

REPORT INFORMATION
  Report Type: 
  Country: None (occurrence: None)
  Receive Date: 20061129
  Receipt Date: 20061113
  Transmission Date: 20070319
  Serious: Yes (Disabling)
  Sender: FDA-Public Use
  Company Number: 36989

PATIENT
  Sex: Male

DRUGS (3)
  1. MAXIDEX [Suspect]
  2. TIMOLOL 0.50% [Suspect]
  3. CYCLOSPORINE [Concomitant]

REACTIONS (2)
  - CORNEAL DEPOSITS [None]
  - VISUAL ACUITY REDUCED [None]
